FAERS Safety Report 6597903-9 (Version None)
Quarter: 2010Q1

REPORT INFORMATION
  Report Type: 
  Country: None (occurrence: None)
  Receive Date: 20100223
  Receipt Date: 20091208
  Transmission Date: 20100710
  Serious: No
  Sender: FDA-Public Use
  Company Number: US-ALLERGAN-0916871US

PATIENT
  Age: 41 Year
  Sex: Female

DRUGS (4)
  1. BOTOX COSMETIC [Suspect]
     Indication: SKIN WRINKLING
     Dosage: 40.4 UNITS, SINGLE
     Route: 030
     Dates: start: 20091201, end: 20091201
  2. SOMA [Concomitant]
  3. NAPROSYN [Concomitant]
  4. PROZAC [Concomitant]

REACTIONS (2)
  - INFLUENZA LIKE ILLNESS [None]
  - RASH GENERALISED [None]
